FAERS Safety Report 14979554 (Version 3)
Quarter: 2018Q3

REPORT INFORMATION
  Report Type: Report from Study
  Country: IT (occurrence: IT)
  Receive Date: 20180606
  Receipt Date: 20180829
  Transmission Date: 20181010
  Serious: Yes (Hospitalization)
  Sender: FDA-Public Use
  Company Number: IT-PFIZER INC-2018227976

PATIENT
  Age: 61 Year
  Sex: Male

DRUGS (3)
  1. ARCOXIA [Suspect]
     Active Substance: ETORICOXIB
     Indication: PAIN
     Dosage: 3 DF, TOTAL (3 TABLETS)
     Route: 048
     Dates: start: 20180426, end: 20180426
  2. XANAX [Suspect]
     Active Substance: ALPRAZOLAM
     Indication: ANXIETY
     Dosage: 6 DF, TOTAL (6 TABLETS)
     Route: 048
     Dates: start: 20180426, end: 20180426
  3. MICARDISPLUS [Suspect]
     Active Substance: HYDROCHLOROTHIAZIDE\TELMISARTAN
     Indication: ESSENTIAL HYPERTENSION
     Dosage: 3 DF OF [HYDROCHLOROTHIAZIDE 80MG, TELMISARTAN 12.5MG], TOTAL (3 TABLETS)
     Route: 048
     Dates: start: 20180426, end: 20180426

REACTIONS (3)
  - Altered state of consciousness [Recovered/Resolved]
  - Drug abuse [Recovered/Resolved]
  - Sluggishness [Recovered/Resolved]

NARRATIVE: CASE EVENT DATE: 20180426
